FAERS Safety Report 5043856-4 (Version None)
Quarter: 2006Q2

REPORT INFORMATION
  Report Type: 
  Country: None (occurrence: None)
  Receive Date: 20060629
  Receipt Date: 20060621
  Transmission Date: 20061013
  Serious: Yes (Death)
  Sender: FDA-Public Use
  Company Number: 2006-BP-07064RO

PATIENT
  Age: 50 Year
  Sex: Male

DRUGS (1)
  1. METHADONE HCL [Suspect]
     Dosage: SEE TEXT, PO
     Route: 048
     Dates: end: 20060128

REACTIONS (2)
  - DRUG TOXICITY [None]
  - INCORRECT DOSE ADMINISTERED [None]
